FAERS Safety Report 23992903 (Version 1)
Quarter: 2024Q2

REPORT INFORMATION
  Report Type: Spontaneous
  Country: US (occurrence: US)
  Receive Date: 20240620
  Receipt Date: 20240620
  Transmission Date: 20240715
  Serious: No
  Sender: FDA-Public Use
  Company Number: US-AUROBINDO-AUR-APL-2023-067651

PATIENT
  Sex: Female

DRUGS (1)
  1. PENICILLIN V POTASSIUM [Suspect]
     Active Substance: PENICILLIN V POTASSIUM
     Indication: Dental care
     Dosage: 500 MILLIGRAM, FOUR TIMES/DAY
     Route: 048
     Dates: start: 20231023, end: 20231027

REACTIONS (3)
  - Abdominal pain upper [Unknown]
  - Anxiety [Unknown]
  - Gastrooesophageal reflux disease [Unknown]

NARRATIVE: CASE EVENT DATE: 20231102
